FAERS Safety Report 9997214 (Version 1)
Quarter: 2014Q1

REPORT INFORMATION
  Report Type: Spontaneous
  Country: US (occurrence: US)
  Receive Date: 20140311
  Receipt Date: 20140311
  Transmission Date: 20141002
  Serious: No
  Sender: FDA-Public Use
  Company Number: US-GLAXOSMITHKLINE-A1023840A

PATIENT
  Age: 55 Year
  Sex: Male

DRUGS (3)
  1. NICORETTE FRUIT CHILL OTC 2MG [Suspect]
     Indication: EX-TOBACCO USER
     Dates: start: 20130516
  2. NEXIUM [Concomitant]
  3. UNSPECIFIED [Concomitant]

REACTIONS (1)
  - Drug administration error [Unknown]
